FAERS Safety Report 9114408 (Version 1)
Quarter: 2013Q1

REPORT INFORMATION
  Report Type: Spontaneous
  Country: US (occurrence: None)
  Receive Date: 20130220
  Receipt Date: 20130220
  Transmission Date: 20140127
  Serious: No
  Sender: FDA-Public Use
  Company Number: None

PATIENT
  Age: 45 Year
  Sex: Female
  Weight: 65.77 kg

DRUGS (2)
  1. LAMOTRIGINE [Suspect]
     Indication: CONVULSION
     Dosage: 1 TAB   BID   PO?YRS   07/14/2011  --  02/15/2013
     Route: 048
     Dates: start: 20110714, end: 20130215
  2. LAMOTRIGINE [Suspect]
     Indication: CONVULSION
     Dosage: 1  TAB   BID  PO?YRS  09/20/2011  --  02/15/2013
     Route: 048
     Dates: start: 20110920, end: 20130215

REACTIONS (4)
  - Dysgeusia [None]
  - Product quality issue [None]
  - Foreign body [None]
  - Tablet physical issue [None]
